FAERS Safety Report 5951091-8 (Version None)
Quarter: 2008Q4

REPORT INFORMATION
  Report Type: 
  Country: None (occurrence: None)
  Receive Date: 20081112
  Receipt Date: 20081112
  Transmission Date: 20090506
  Serious: Yes (Life-Threatening, Hospitalization, Other)
  Sender: FDA-Public Use
  Company Number: None

PATIENT
  Age: 56 Year
  Sex: Female
  Weight: 88.905 kg

DRUGS (1)
  1. ALLOPURINOL [Suspect]
     Indication: GOUT
     Dosage: 300MG DAILY PO
     Route: 048
     Dates: start: 20080926, end: 20081027

REACTIONS (5)
  - AMNESIA [None]
  - DEPRESSION [None]
  - DISSOCIATION [None]
  - OVERDOSE [None]
  - SUICIDE ATTEMPT [None]
